FAERS Safety Report 7438314-3 (Version None)
Quarter: 2011Q2

REPORT INFORMATION
  Report Type: 
  Country: None (occurrence: None)
  Receive Date: 20110426
  Receipt Date: 20110328
  Transmission Date: 20111010
  Serious: Yes (Hospitalization, Other)
  Sender: FDA-Public Use
  Company Number: US-BAYER-2011-025262

PATIENT
  Age: 38 Year
  Sex: Female
  Weight: 102 kg

DRUGS (9)
  1. YAZ [Suspect]
     Indication: ENDOMETRIAL HYPERTROPHY
  2. YASMIN [Suspect]
     Indication: HIRSUTISM
     Dosage: UNK
     Dates: start: 20011201, end: 20020401
  3. YAZ [Suspect]
     Indication: CONTRACEPTION
     Dosage: UNK
     Dates: start: 20070701, end: 20071001
  4. MIDRIN [Concomitant]
     Dosage: UNK
     Dates: start: 19900101
  5. ALEVE (CAPLET) [Concomitant]
     Indication: ANALGESIC THERAPY
     Dosage: UNK UNK, PRN
  6. YASMIN [Suspect]
     Indication: ENDOMETRIAL HYPERTROPHY
  7. YASMIN [Suspect]
     Indication: MENORRHAGIA
  8. YAZ [Suspect]
     Indication: MENORRHAGIA
  9. DURADRIN [Concomitant]

REACTIONS (6)
  - GALLBLADDER DISORDER [None]
  - BOWEL MOVEMENT IRREGULARITY [None]
  - PAIN [None]
  - CHOLECYSTITIS CHRONIC [None]
  - CHOLELITHIASIS [None]
  - PANCREATITIS [None]
